FAERS Safety Report 16652912 (Version 1)
Quarter: 2019Q3

REPORT INFORMATION
  Report Type: Spontaneous
  Country: IL (occurrence: IL)
  Receive Date: 20190731
  Receipt Date: 20190731
  Transmission Date: 20191004
  Serious: Yes (Other)
  Sender: FDA-Public Use
  Company Number: IL-AMGEN-ISRSP2019119465

PATIENT
  Age: 57 Year
  Sex: Male

DRUGS (13)
  1. ROKACET PLUS [Concomitant]
  2. NOCTURNO [Concomitant]
     Dosage: 7.5 UNK
  3. XATRAL [ALFUZOSIN HYDROCHLORIDE] [Concomitant]
     Active Substance: ALFUZOSIN
     Dosage: 10 MILLIGRAM
  4. SOMATULINE [LANREOTIDE] [Concomitant]
     Active Substance: LANREOTIDE
     Indication: NEUROENDOCRINE TUMOUR
     Dosage: 240 MILLIGRAM, Q4WK
     Dates: start: 20110816
  5. XGEVA [Suspect]
     Active Substance: DENOSUMAB
     Indication: PRODUCT USED FOR UNKNOWN INDICATION
     Dosage: 120 MILLIGRAM (1.7ML), QMO
     Route: 065
  6. GLUCOMIN [Concomitant]
     Active Substance: METFORMIN HYDROCHLORIDE
     Dosage: 850 MILLIGRAM
  7. PROLOL [PROPRANOLOL HYDROCHLORIDE] [Concomitant]
     Dosage: 10 MILLIGRAM
  8. CREON [Concomitant]
     Active Substance: PANCRELIPASE AMYLASE\PANCRELIPASE LIPASE\PANCRELIPASE PROTEASE
     Dosage: 25000 UNK
  9. OTRIVIN [Concomitant]
     Active Substance: XYLOMETAZOLINE
  10. AFINITOR [Concomitant]
     Active Substance: EVEROLIMUS
  11. MULTIVITAMIN [ASCORBIC ACID;BIOTIN;CALCIUM PANTOTHENATE;CYANOCOBALAMIN [Concomitant]
     Active Substance: VITAMINS
  12. TRIBEMIN [Concomitant]
     Active Substance: CYANOCOBALAMIN\PYRIDOXINE HYDROCHLORIDE\THIAMINE
     Dosage: UNK
  13. INTERFERON [Concomitant]
     Active Substance: INTERFERON

REACTIONS (4)
  - Neuroendocrine carcinoma metastatic [Unknown]
  - Groin pain [Not Recovered/Not Resolved]
  - Urethral stent insertion [Unknown]
  - Musculoskeletal pain [Not Recovered/Not Resolved]
